FAERS Safety Report 8973316 (Version 1)
Quarter: 2012Q4

REPORT INFORMATION
  Report Type: 
  Country: US (occurrence: US)
  Receive Date: 20121218
  Receipt Date: 20121218
  Transmission Date: 20130627
  Serious: Yes (Other)
  Sender: FDA-Public Use
  Company Number: US-BRISTOL-MYERS SQUIBB COMPANY-16443947

PATIENT
  Age: 61 Year
  Sex: Female

DRUGS (4)
  1. ABILIFY TABS [Suspect]
     Indication: DEPRESSION
  2. LEXAPRO [Concomitant]
  3. WELLBUTRIN [Concomitant]
  4. KLONOPIN [Concomitant]

REACTIONS (1)
  - Tardive dyskinesia [Unknown]
